FAERS Safety Report 9189244 (Version 1)
Quarter: 2013Q1

REPORT INFORMATION
  Report Type: Spontaneous
  Country: US (occurrence: None)
  Receive Date: 20120628
  Receipt Date: 20120628
  Transmission Date: 20140127
  Serious: Yes (Other)
  Sender: FDA-Public Use
  Company Number: ALL1-2012-02629

PATIENT
  Age: 49 Year
  Sex: Female
  Weight: 74.4 kg

DRUGS (4)
  1. INTUNIV [Suspect]
     Indication: ATTENTION DEFICIT/HYPERACTIVITY DISORDER
     Route: 048
     Dates: start: 201205, end: 20120515
  2. LEXAPRO (ESCITALOPRAM OXALATE)TABLET [Concomitant]
  3. LIPITOR (ATORVASTATIN CALCIUM) TABLET [Concomitant]
  4. DETROL LA (TOLTERODINE L-TARTRATE) [Concomitant]

REACTIONS (7)
  - Sinus bradycardia [None]
  - Orthostatic hypotension [None]
  - Dizziness [None]
  - Headache [None]
  - Fatigue [None]
  - Inappropriate schedule of drug administration [None]
  - Off label use [None]
